FAERS Safety Report 7913308-X (Version None)
Quarter: 2011Q4

REPORT INFORMATION
  Report Type: 
  Country: None (occurrence: None)
  Receive Date: 20111114
  Receipt Date: 20111104
  Transmission Date: 20120403
  Serious: Yes (Hospitalization, Other)
  Sender: FDA-Public Use
  Company Number: US-ASTRAZENECA-2010SE26525

PATIENT
  Age: 53 Year
  Sex: Female

DRUGS (2)
  1. LISINOPRIL [Concomitant]
  2. NEXIUM [Suspect]
     Route: 048
     Dates: start: 20060101

REACTIONS (17)
  - BLOOD GLUCOSE INCREASED [None]
  - THROAT CANCER [None]
  - GASTROOESOPHAGEAL REFLUX DISEASE [None]
  - PAIN [None]
  - FALL [None]
  - MULTIPLE INJURIES [None]
  - INAPPROPRIATE SCHEDULE OF DRUG ADMINISTRATION [None]
  - CHEST PAIN [None]
  - BLOOD CHOLESTEROL INCREASED [None]
  - THERAPEUTIC RESPONSE UNEXPECTED [None]
  - PNEUMONIA [None]
  - TYPE 2 DIABETES MELLITUS [None]
  - DRUG DOSE OMISSION [None]
  - SINUSITIS [None]
  - PHARYNGITIS STREPTOCOCCAL [None]
  - BRONCHITIS [None]
  - EAR INFECTION [None]
